FAERS Safety Report 7248251-5 (Version None)
Quarter: 2011Q1

REPORT INFORMATION
  Report Type: 
  Country: None (occurrence: None)
  Receive Date: 20110127
  Receipt Date: 20101206
  Transmission Date: 20110831
  Serious: Yes (Hospitalization, Other)
  Sender: FDA-Public Use
  Company Number: US-BAYER-201042131NA

PATIENT
  Sex: Female
  Weight: 68 kg

DRUGS (9)
  1. YASMIN [Suspect]
     Indication: ACNE
  2. ANTI-ASTHMATICS [Concomitant]
     Dosage: UNK
     Dates: start: 20030101
  3. ANTIBIOTICS [Concomitant]
     Dosage: UNK
     Dates: start: 20020101
  4. ACETAMINOPHEN [Concomitant]
     Dosage: UNK
     Dates: start: 20060425
  5. CLARITIN [Concomitant]
     Dosage: UNK
     Dates: start: 20060401
  6. TYLENOL W/ CODEINE [Concomitant]
  7. YASMIN [Suspect]
     Indication: CONTRACEPTION
     Dosage: UNK UNK, UNK
     Route: 048
     Dates: start: 20010401, end: 20060426
  8. PREDNISONE [Concomitant]
     Dosage: 10 UNK, UNK
     Dates: start: 20060425
  9. NASONEX [Concomitant]
     Dosage: UNK
     Dates: start: 20060401

REACTIONS (3)
  - DEEP VEIN THROMBOSIS [None]
  - PAIN [None]
  - PULMONARY EMBOLISM [None]
